FAERS Safety Report 10913052 (Version 2)
Quarter: 2015Q1

REPORT INFORMATION
  Report Type: Report from Study
  Country: BR (occurrence: BR)
  Receive Date: 20150313
  Receipt Date: 20150324
  Transmission Date: 20150721
  Serious: Yes (Hospitalization)
  Sender: FDA-Public Use
  Company Number: BR-ABBVIE-15K-020-1357552-00

PATIENT
  Sex: Male

DRUGS (1)
  1. HUMIRA [Suspect]
     Active Substance: ADALIMUMAB
     Indication: CROHN^S DISEASE
     Route: 058

REACTIONS (6)
  - Weight decreased [Unknown]
  - Frequent bowel movements [Unknown]
  - Haematochezia [Unknown]
  - Diarrhoea [Unknown]
  - Malaise [Unknown]
  - Anaemia [Unknown]
